FAERS Safety Report 23859102 (Version 1)
Quarter: 2024Q2

REPORT INFORMATION
  Report Type: Spontaneous
  Country: US (occurrence: None)
  Receive Date: 20240515
  Receipt Date: 20240515
  Transmission Date: 20240716
  Serious: Yes (Hospitalization)
  Sender: FDA-Public Use
  Company Number: None

PATIENT
  Age: 74 Year
  Sex: Male
  Weight: 89 kg

DRUGS (1)
  1. BUDESONIDE\FORMOTEROL FUMARATE [Suspect]
     Active Substance: BUDESONIDE\FORMOTEROL FUMARATE
     Indication: Chronic obstructive pulmonary disease
     Dosage: OTHER QUANTITY : 80/4.5 MCG;?FREQUENCY : AS NEEDED;?
     Route: 055
     Dates: start: 20230609, end: 20230915

REACTIONS (1)
  - Chest pain [None]

NARRATIVE: CASE EVENT DATE: 20230915
